FAERS Safety Report 19175894 (Version 1)
Quarter: 2021Q2

REPORT INFORMATION
  Report Type: Spontaneous
  Country: US (occurrence: US)
  Receive Date: 20210424
  Receipt Date: 20210424
  Transmission Date: 20210717
  Serious: Yes (Other)
  Sender: FDA-Public Use
  Company Number: US-UCBSA-2021017542

PATIENT
  Age: 25 Year
  Sex: Female

DRUGS (6)
  1. VIMPAT [Suspect]
     Active Substance: LACOSAMIDE
     Dosage: 200 MILLIGRAMS IN THE MORNING AND 300 MILLIGRAMS IN THE EVENING
  2. VIMPAT [Suspect]
     Active Substance: LACOSAMIDE
     Indication: SEIZURE
     Dosage: 200 MILLIGRAMS IN THE MORNING AND 300 MILLIGRAMS IN THE EVENING
  3. VIMPAT [Suspect]
     Active Substance: LACOSAMIDE
     Dosage: 200 MILLIGRAM, 2X/DAY (BID)
  4. VIMPAT [Suspect]
     Active Substance: LACOSAMIDE
     Dosage: 200 MILLIGRAMS IN THE MORNING AND 350 MILLIGRAMS IN THE EVENING
  5. FOLIC ACID. [Concomitant]
     Active Substance: FOLIC ACID
     Indication: SEIZURE
     Dosage: UNK
  6. LAMOTRIGINE. [Concomitant]
     Active Substance: LAMOTRIGINE
     Indication: SEIZURE
     Dosage: 200 MILLIGRAM, 2X/DAY (BID)

REACTIONS (5)
  - Amniotic fluid volume decreased [Unknown]
  - Incorrect dose administered [Unknown]
  - Seizure [Unknown]
  - Maternal exposure before pregnancy [Unknown]
  - Off label use [Unknown]
